FAERS Safety Report 8073101-7 (Version None)
Quarter: 2012Q1

REPORT INFORMATION
  Report Type: 
  Country: None (occurrence: None)
  Receive Date: 20120123
  Receipt Date: 20120123
  Transmission Date: 20120608
  Serious: Yes (Other)
  Sender: FDA-Public Use
  Company Number: None

PATIENT
  Sex: Male
  Weight: 92 kg

DRUGS (3)
  1. HIZENTRA [Suspect]
     Indication: IMMUNODEFICIENCY COMMON VARIABLE
     Dosage: 9 GM QWEEK SQ
     Route: 058
     Dates: start: 20101225, end: 20120113
  2. HIZENTRA [Suspect]
  3. EMLA [Concomitant]

REACTIONS (1)
  - BLOOD CREATININE INCREASED [None]
